FAERS Safety Report 10671377 (Version 1)
Quarter: 2014Q4

REPORT INFORMATION
  Report Type: Spontaneous
  Country: FR (occurrence: FR)
  Receive Date: 20141223
  Receipt Date: 20141223
  Transmission Date: 20150529
  Serious: Yes (Other)
  Sender: FDA-Public Use
  Company Number: FR-TEVA-530188ISR

PATIENT
  Age: 30 Year

DRUGS (1)
  1. COPAXONE [Suspect]
     Active Substance: GLATIRAMER ACETATE
     Indication: MULTIPLE SCLEROSIS
     Dates: start: 2014

REACTIONS (8)
  - Tachycardia [Unknown]
  - Chills [Unknown]
  - Erythema [Unknown]
  - Malaise [Unknown]
  - Choking sensation [Unknown]
  - Dyspnoea [Unknown]
  - Feeling hot [Unknown]
  - Paraesthesia [Unknown]

NARRATIVE: CASE EVENT DATE: 20141216
